FAERS Safety Report 12772212 (Version 6)
Quarter: 2017Q3

REPORT INFORMATION
  Report Type: Report from Study
  Country: CA (occurrence: CA)
  Receive Date: 20160922
  Receipt Date: 20170717
  Transmission Date: 20171127
  Serious: Yes (Death, Hospitalization)
  Sender: FDA-Public Use
  Company Number: CA-HLSUS-2016-CA-000460

PATIENT
  Age: 44 Year
  Sex: Male

DRUGS (1)
  1. CLOZARIL [Suspect]
     Active Substance: CLOZAPINE
     Indication: SCHIZOPHRENIA
     Dosage: 500 MG ONCE DAILY
     Route: 048
     Dates: start: 19980520, end: 20170420

REACTIONS (4)
  - Oesophageal carcinoma [Fatal]
  - Neutropenia [Unknown]
  - Adverse event [Unknown]
  - Leukopenia [Unknown]

NARRATIVE: CASE EVENT DATE: 2016
